FAERS Safety Report 7277255-1 (Version None)
Quarter: 2011Q1

REPORT INFORMATION
  Report Type: 
  Country: None (occurrence: None)
  Receive Date: 20110202
  Receipt Date: 20110202
  Transmission Date: 20110831
  Serious: Yes (Other)
  Sender: FDA-Public Use
  Company Number: None

PATIENT
  Age: 55 Year
  Sex: Male
  Weight: 97.5234 kg

DRUGS (2)
  1. NAPROXEN [Suspect]
     Indication: MUSCLE STRAIN
     Dosage: 1 TABLET BID PO
     Route: 048
     Dates: start: 20110125, end: 20110126
  2. NAPROXEN [Suspect]
     Indication: BACK PAIN
     Dosage: 1 TABLET BID PO
     Route: 048
     Dates: start: 20110125, end: 20110126

REACTIONS (2)
  - ABDOMINAL PAIN UPPER [None]
  - RECTAL HAEMORRHAGE [None]
